FAERS Safety Report 4552641-9 (Version None)
Quarter: 2005Q1

REPORT INFORMATION
  Report Type: 
  Country: None (occurrence: None)
  Receive Date: 20050112
  Receipt Date: 20050112
  Transmission Date: 20050727
  Serious: Yes (Other)
  Sender: FDA-Public Use
  Company Number: None

PATIENT
  Age: 79 Year
  Sex: Male

DRUGS (7)
  1. OMEPRAZOLE [Suspect]
     Indication: GASTROOESOPHAGEAL REFLUX DISEASE
     Dosage: 1 CAPSULE BY MOUTH EVERY MORNING
     Dates: start: 20041202, end: 20050107
  2. OMEPRAZOLE [Suspect]
     Indication: ULCER
     Dosage: 1 CAPSULE BY MOUTH EVERY MORNING
     Dates: start: 20041202, end: 20050107
  3. QUININE [Concomitant]
  4. FLUOXETINE [Concomitant]
  5. ZOCOR [Concomitant]
  6. VASERETIC [Concomitant]
  7. LORAZEPAM [Concomitant]

REACTIONS (1)
  - CHEST DISCOMFORT [None]
